FAERS Safety Report 24454598 (Version 2)
Quarter: 2024Q4

REPORT INFORMATION
  Report Type: Report from Study
  Country: CA (occurrence: CA)
  Receive Date: 20241017
  Receipt Date: 20241018
  Transmission Date: 20250115
  Serious: No
  Sender: ROCHE
  Company Number: CA-ROCHE-3475353

PATIENT
  Age: 45 Year
  Sex: Female

DRUGS (10)
  1. RITUXAN [Suspect]
     Active Substance: RITUXIMAB
     Indication: Rheumatoid arthritis
     Dosage: ON 28/NOV, SHE RECEIVED HER DAY 1 DRUG 1000 MG R.T. INFUSION.
     Route: 041
     Dates: start: 20191112
  2. PREDNISONE [Concomitant]
     Active Substance: PREDNISONE
  3. BETAMETHASONE DIPROPIONATE\CALCIPOTRIENE MONOHYDRATE [Concomitant]
     Active Substance: BETAMETHASONE DIPROPIONATE\CALCIPOTRIENE MONOHYDRATE
     Dosage: AS NEEDED
     Route: 061
  4. DULOXETINE [Concomitant]
     Active Substance: DULOXETINE
  5. LORAZEPAM [Concomitant]
     Active Substance: LORAZEPAM
  6. METHOTREXATE [Concomitant]
     Active Substance: METHOTREXATE
  7. METHYLPREDNISOLONE [Concomitant]
     Active Substance: METHYLPREDNISOLONE
  8. METROGEL [Concomitant]
     Active Substance: METRONIDAZOLE
     Indication: Rosacea
  9. PLAQUENIL [Concomitant]
     Active Substance: HYDROXYCHLOROQUINE SULFATE
  10. TRIAMCINOLONE ACETONIDE [Concomitant]
     Active Substance: TRIAMCINOLONE ACETONIDE

REACTIONS (1)
  - Eye infection [Recovering/Resolving]

NARRATIVE: CASE EVENT DATE: 20231211
